FAERS Safety Report 14733124 (Version 1)
Quarter: 2018Q2

REPORT INFORMATION
  Report Type: Spontaneous
  Country: FR (occurrence: FR)
  Receive Date: 20180409
  Receipt Date: 20180409
  Transmission Date: 20180711
  Serious: Yes (Other)
  Sender: FDA-Public Use
  Company Number: FR-MERCK KGAA-2045360

PATIENT
  Age: 60 Year
  Sex: Male

DRUGS (1)
  1. NOVOTHYROX [Suspect]
     Active Substance: LEVOTHYROXINE SODIUM
     Indication: THYROIDECTOMY
     Dates: start: 201707

REACTIONS (9)
  - Influenza [None]
  - Musculoskeletal chest pain [Not Recovered/Not Resolved]
  - Decreased immune responsiveness [None]
  - Blood thyroid stimulating hormone increased [None]
  - Pericarditis [Recovered/Resolved]
  - Feeling abnormal [None]
  - Myalgia [None]
  - Fatigue [Not Recovered/Not Resolved]
  - Insomnia [None]

NARRATIVE: CASE EVENT DATE: 2017
